FAERS Safety Report 8244910-6 (Version None)
Quarter: 2012Q1

REPORT INFORMATION
  Report Type: 
  Country: None (occurrence: None)
  Receive Date: 20120329
  Receipt Date: 20110902
  Transmission Date: 20120608
  Serious: No
  Sender: FDA-Public Use
  Company Number: US-MYLANLABS-2011S1018539

PATIENT
  Age: 46 Year
  Sex: Female

DRUGS (2)
  1. FENTANYL-100 [Suspect]
     Dosage: CHANGE Q2D
     Route: 062
     Dates: start: 20110801
  2. FENTANYL-100 [Suspect]
     Indication: PAIN
     Dosage: CHANGE Q2D
     Route: 062
     Dates: start: 20110101, end: 20110701

REACTIONS (3)
  - APPLICATION SITE RASH [None]
  - WITHDRAWAL SYNDROME [None]
  - APPLICATION SITE VESICLES [None]
